FAERS Safety Report 21303853 (Version 1)
Quarter: 2022Q3

REPORT INFORMATION
  Report Type: Spontaneous
  Country: VN (occurrence: VN)
  Receive Date: 20220907
  Receipt Date: 20220907
  Transmission Date: 20221027
  Serious: Yes (Other)
  Sender: FDA-Public Use
  Company Number: VN-GUERBET-VN-20220017

PATIENT
  Age: 50 Year
  Sex: Female

DRUGS (2)
  1. LIPIODOL [Suspect]
     Active Substance: ETHIODIZED OIL
     Indication: Therapeutic embolisation
     Dosage: LIPIODOL IN MIXTURE WITH HISTOACRYL GLUE
     Route: 065
  2. HISTOACRYL [Suspect]
     Active Substance: ENBUCRILATE
     Indication: Therapeutic embolisation
     Dosage: LIPIODOL IN MIXTURE WITH HISTOACRYL GLUE
     Route: 065

REACTIONS (2)
  - Chemical peritonitis [Recovering/Resolving]
  - Product use in unapproved indication [Recovering/Resolving]
